FAERS Safety Report 14339935 (Version 1)
Quarter: 2017Q4

REPORT INFORMATION
  Report Type: Spontaneous
  Country: CH (occurrence: CH)
  Receive Date: 20171231
  Receipt Date: 20171231
  Transmission Date: 20180321
  Serious: Yes (Hospitalization)
  Sender: FDA-Public Use
  Company Number: CH-TEVA-2017-CH-839288

PATIENT
  Age: 57 Year
  Sex: Male

DRUGS (9)
  1. ROSUVASTATIN. [Concomitant]
     Active Substance: ROSUVASTATIN
     Dosage: 10 MILLIGRAM DAILY;
     Route: 065
  2. IBUPROFEN. [Suspect]
     Active Substance: IBUPROFEN
     Dosage: 1800 MILLIGRAM DAILY; BRAND UNKNOWN. DECREASED TO 400 MG 3X/1 DAY SINCE 29.11.2017
     Route: 048
     Dates: start: 20171122
  3. SINTROM [Concomitant]
     Active Substance: ACENOCOUMAROL
     Route: 065
     Dates: end: 20171120
  4. DAFALGAN [Suspect]
     Active Substance: ACETAMINOPHEN
     Dosage: 4 GRAM DAILY; SUSPENDED FOR 1 DAY ON 01.12.2017
     Route: 048
     Dates: start: 2012
  5. HEPARIN [Suspect]
     Active Substance: HEPARIN SODIUM
     Dosage: BRAND AND DOSAGE UNKNOWN
     Route: 041
     Dates: start: 20171122
  6. ASPIRIN CARDIO [Concomitant]
     Active Substance: ASPIRIN
     Dosage: 100 MILLIGRAM DAILY;
     Route: 065
  7. MORPHINE [Suspect]
     Active Substance: MORPHINE
     Dosage: 60 MILLIGRAM DAILY;
     Route: 048
     Dates: start: 20171122, end: 20171128
  8. METOPROLOL. [Concomitant]
     Active Substance: METOPROLOL
     Dosage: 50 MILLIGRAM DAILY;
     Route: 065
  9. ESOMEPRAZOLE [Concomitant]
     Active Substance: ESOMEPRAZOLE
     Dosage: 40 MILLIGRAM DAILY;
     Route: 065

REACTIONS (1)
  - Cholestatic liver injury [Not Recovered/Not Resolved]

NARRATIVE: CASE EVENT DATE: 20171201
